FAERS Safety Report 5431440-X (Version None)
Quarter: 2007Q3

REPORT INFORMATION
  Report Type: 
  Country: None (occurrence: None)
  Receive Date: 20070830
  Receipt Date: 20070618
  Transmission Date: 20080115
  Serious: No
  Sender: FDA-Public Use
  Company Number: A0657202A

PATIENT
  Age: 24 Year
  Sex: Female

DRUGS (6)
  1. WELLBUTRIN XL [Suspect]
     Indication: OBSESSIVE-COMPULSIVE DISORDER
     Route: 048
  2. UNKNOWN MEDICATION [Concomitant]
  3. SEROQUEL [Concomitant]
  4. XANAX [Concomitant]
  5. RETIN-A [Concomitant]
  6. MULTIPLE MEDICATIONS [Concomitant]

REACTIONS (1)
  - ACNE [None]
